FAERS Safety Report 24173736 (Version 1)
Quarter: 2024Q3

REPORT INFORMATION
  Report Type: Spontaneous
  Country: ES (occurrence: ES)
  Receive Date: 20240805
  Receipt Date: 20240805
  Transmission Date: 20241016
  Serious: Yes (Other)
  Sender: ABBVIE
  Company Number: ES-ABBVIE-5865077

PATIENT
  Age: 23 Year
  Sex: Female
  Weight: 60 kg

DRUGS (2)
  1. NITROGLYCERIN [Suspect]
     Active Substance: NITROGLYCERIN
     Indication: Anal fissure haemorrhage
     Route: 054
     Dates: start: 20240130, end: 20240204
  2. NOLOTIL [Concomitant]
     Indication: Product used for unknown indication
     Dates: start: 20240129, end: 20240205

REACTIONS (7)
  - Hot flush [Recovered/Resolved]
  - Asthenia [Recovered/Resolved]
  - Dizziness postural [Recovered/Resolved]
  - Headache [Recovered/Resolved]
  - Hypotension [Recovered/Resolved]
  - Tachycardia [Recovered/Resolved]
  - Dizziness [Recovered/Resolved]

NARRATIVE: CASE EVENT DATE: 20240130
